FAERS Safety Report 4748183-8 (Version None)
Quarter: 2005Q3

REPORT INFORMATION
  Report Type: 
  Country: None (occurrence: None)
  Receive Date: 20050818
  Receipt Date: 20050806
  Transmission Date: 20060218
  Serious: Yes (Disabling)
  Sender: FDA-Public Use
  Company Number: GB-JNJFOC-20050802120

PATIENT
  Age: 77 Year
  Sex: Male
  Weight: 75 kg

DRUGS (14)
  1. SPORANOX [Suspect]
     Indication: BRONCHOPULMONARY ASPERGILLOSIS
     Route: 048
     Dates: start: 20050127, end: 20050613
  2. FLUTICASONE PROPIONATE [Concomitant]
     Dosage: 2 PUFFS B.I.D.
     Route: 055
  3. COMBIVENT [Concomitant]
     Route: 055
  4. COMBIVENT [Concomitant]
     Route: 055
  5. VENTOLIN [Concomitant]
     Dosage: TAKEN PRN (AS NEEDED).
     Route: 055
  6. PREDNISOLONE [Concomitant]
     Route: 065
  7. GLYCERYL TRINITRATE [Concomitant]
     Dosage: TAKEN PRN (AS REQUIRED)
     Route: 065
  8. OMEPRAZOLE [Concomitant]
     Route: 065
  9. ISOTARD XL [Concomitant]
     Route: 065
  10. LOSARTAN POTASSIUM [Concomitant]
     Route: 065
  11. CLOPIDROGEL [Concomitant]
     Route: 065
  12. FOSAMAX [Concomitant]
     Route: 065
  13. ADCAL D3 [Concomitant]
     Route: 065
  14. ADCAL D3 [Concomitant]
     Route: 065

REACTIONS (2)
  - ELECTROCARDIOGRAM QT CORRECTED INTERVAL PROLONGED [None]
  - OEDEMA PERIPHERAL [None]
